FAERS Safety Report 5259115-0 (Version None)
Quarter: 2007Q1

REPORT INFORMATION
  Report Type: 
  Country: None (occurrence: None)
  Receive Date: 20070308
  Receipt Date: 20070305
  Transmission Date: 20070707
  Serious: Yes (Other)
  Sender: FDA-Public Use
  Company Number: HQWYE910107FEB07

PATIENT
  Sex: Male
  Weight: 77 kg

DRUGS (8)
  1. TYGACIL [Suspect]
     Indication: WOUND INFECTION
     Route: 042
     Dates: start: 20070112, end: 20070127
  2. PROTONIX [Concomitant]
  3. ZELNORM [Concomitant]
  4. BACLOFEN [Concomitant]
  5. SACCHAROMYCES BOULARDII [Concomitant]
  6. COUMADIN [Concomitant]
  7. LORTAB [Concomitant]
  8. FLEXERIL [Concomitant]

REACTIONS (3)
  - CHEST DISCOMFORT [None]
  - DYSPNOEA [None]
  - TYPE IV HYPERSENSITIVITY REACTION [None]
